FAERS Safety Report 5626078-5 (Version None)
Quarter: 2008Q1

REPORT INFORMATION
  Report Type: 
  Country: None (occurrence: None)
  Receive Date: 20080213
  Receipt Date: 20080213
  Transmission Date: 20080703
  Serious: Yes (Death)
  Sender: FDA-Public Use
  Company Number: None

PATIENT
  Age: 64 Year
  Sex: Male
  Weight: 76.6579 kg

DRUGS (4)
  1. FENTANYL-100 [Suspect]
     Indication: IMPLANTABLE DEFIBRILLATOR INSERTION
     Dosage: 50 MCG  ONCE  IV BOLUS
     Route: 042
     Dates: start: 20070808, end: 20070808
  2. FENTANYL-100 [Suspect]
     Indication: SEDATIVE THERAPY
     Dosage: 50 MCG  ONCE  IV BOLUS
     Route: 042
     Dates: start: 20070808, end: 20070808
  3. MIDAZOLAM HCL [Suspect]
     Indication: IMPLANTABLE DEFIBRILLATOR INSERTION
     Dosage: 4 MG  TOTAL DOSE  ONCE  IV BOLUS
     Route: 040
     Dates: start: 20070808, end: 20070808
  4. MIDAZOLAM HCL [Suspect]
     Indication: SEDATIVE THERAPY
     Dosage: 4 MG  TOTAL DOSE  ONCE  IV BOLUS
     Route: 040
     Dates: start: 20070808, end: 20070808

REACTIONS (4)
  - ANOXIC ENCEPHALOPATHY [None]
  - CARDIO-RESPIRATORY ARREST [None]
  - CARDIOGENIC SHOCK [None]
  - RENAL FAILURE [None]
